FAERS Safety Report 10383991 (Version 1)
Quarter: 2014Q3

REPORT INFORMATION
  Report Type: Spontaneous
  Country: CN (occurrence: CN)
  Receive Date: 20140814
  Receipt Date: 20140814
  Transmission Date: 20150326
  Serious: Yes (Life-Threatening, Hospitalization)
  Sender: FDA-Public Use
  Company Number: CN-BAYER-2014-116056

PATIENT
  Age: 48 Year
  Sex: Female
  Weight: 56 kg

DRUGS (5)
  1. PHLOROGLUCINOL [Concomitant]
     Active Substance: PHLOROGLUCINOL
     Dosage: 80 MG (GTT), BID
  2. POTASSIUM CHLORIDE. [Concomitant]
     Active Substance: POTASSIUM CHLORIDE
     Dosage: 0.7 GTT, BID
  3. AVELOX [Suspect]
     Active Substance: MOXIFLOXACIN HYDROCHLORIDE
     Indication: INFECTION PROPHYLAXIS
     Dosage: 0.4 G, QD
     Route: 042
     Dates: start: 20140203, end: 20140208
  4. METRONIDAZOLE. [Concomitant]
     Active Substance: METRONIDAZOLE
     Dosage: 0.5 G, BID
  5. OMEPRAZOLE. [Concomitant]
     Active Substance: OMEPRAZOLE
     Dosage: 40 MG, QD

REACTIONS (2)
  - Tachycardia [Recovered/Resolved]
  - Bundle branch block right [Recovered/Resolved]

NARRATIVE: CASE EVENT DATE: 20140208
